FAERS Safety Report 23181384 (Version 5)
Quarter: 2024Q2

REPORT INFORMATION
  Report Type: Spontaneous
  Country: GB (occurrence: GB)
  Receive Date: 20231114
  Receipt Date: 20240617
  Transmission Date: 20240716
  Serious: Yes (Hospitalization)
  Sender: FDA-Public Use
  Company Number: GB-MYLANLABS-2023M1103726

PATIENT
  Age: 46 Year
  Sex: Female

DRUGS (1)
  1. CLOZARIL [Suspect]
     Active Substance: CLOZAPINE
     Indication: Schizophrenia
     Dosage: UNK
     Route: 048
     Dates: start: 20171017, end: 20230913

REACTIONS (6)
  - Pneumonia [Recovered/Resolved]
  - Psychotic disorder [Unknown]
  - Treatment noncompliance [Unknown]
  - Differential white blood cell count abnormal [Not Recovered/Not Resolved]
  - Leukocytosis [Unknown]
  - Eosinophilia [Not Recovered/Not Resolved]

NARRATIVE: CASE EVENT DATE: 20230920
